FAERS Safety Report 8045640-6 (Version None)
Quarter: 2012Q1

REPORT INFORMATION
  Report Type: 
  Country: None (occurrence: None)
  Receive Date: 20120110
  Receipt Date: 20111227
  Transmission Date: 20120608
  Serious: Yes (Hospitalization)
  Sender: FDA-Public Use
  Company Number: 2011MA018141

PATIENT
  Age: 51 Year
  Sex: Male

DRUGS (2)
  1. CARBIDOPA AND LEVODOPA [Suspect]
     Indication: PARKINSONISM
  2. METHYLPHENIDATE [Suspect]
     Indication: PARKINSONISM

REACTIONS (5)
  - NAUSEA [None]
  - AKINESIA [None]
  - HYPOPHAGIA [None]
  - VOMITING [None]
  - DYSPHAGIA [None]
